FAERS Safety Report 5495013-5 (Version None)
Quarter: 2007Q4

REPORT INFORMATION
  Report Type: 
  Country: None (occurrence: None)
  Receive Date: 20071024
  Receipt Date: 20071017
  Transmission Date: 20080405
  Serious: Yes (Hospitalization)
  Sender: FDA-Public Use
  Company Number: US-SHR-US-2006-040832

PATIENT
  Age: 37 Year
  Sex: Female
  Weight: 74.8 kg

DRUGS (3)
  1. MIRENA [Suspect]
     Dosage: 20 A?G/DAY, CONT
     Route: 015
     Dates: start: 20060822, end: 20061208
  2. NEURONTIN [Concomitant]
     Dosage: 900 MG/D, UNK
  3. NORCO [Concomitant]
     Dosage: 10/325 MG, 2X/DAY

REACTIONS (5)
  - ABSCESS INTESTINAL [None]
  - ANAL DISCOMFORT [None]
  - APPENDICITIS PERFORATED [None]
  - INFECTION [None]
  - PAIN [None]
